FAERS Safety Report 5040494-4 (Version None)
Quarter: 2006Q2

REPORT INFORMATION
  Report Type: 
  Country: None (occurrence: None)
  Receive Date: 20060630
  Receipt Date: 20060405
  Transmission Date: 20061013
  Serious: Yes (Other)
  Sender: FDA-Public Use
  Company Number: US-ROCHE-443529

PATIENT
  Age: 79 Year
  Sex: Female
  Weight: 56.2 kg

DRUGS (1)
  1. BONIVA [Suspect]
     Indication: OSTEOPOROSIS
     Route: 048
     Dates: start: 20060321, end: 20060321

REACTIONS (3)
  - AORTIC ANEURYSM [None]
  - ARTERIOSCLEROSIS [None]
  - DIARRHOEA [None]
